FAERS Safety Report 21982536 (Version 1)
Quarter: 2023Q1

REPORT INFORMATION
  Report Type: Report from Study
  Country: US (occurrence: US)
  Receive Date: 20230213
  Receipt Date: 20230213
  Transmission Date: 20230418
  Serious: Yes (Hospitalization, Other)
  Sender: FDA-Public Use
  Company Number: US-ABBVIE-4305287

PATIENT
  Age: 61 Year
  Sex: Female

DRUGS (4)
  1. IMBRUVICA [Suspect]
     Active Substance: IBRUTINIB
     Indication: Chronic lymphocytic leukaemia
     Route: 048
     Dates: start: 20211001
  2. IMBRUVICA [Suspect]
     Active Substance: IBRUTINIB
     Indication: Chronic lymphocytic leukaemia
     Route: 048
  3. Oxycodone 10/325 MG [Concomitant]
     Indication: Product used for unknown indication
     Dosage: 1 TABLET EVERY 8 HOURS AS NEEDED
     Dates: start: 2023
  4. Zofran 8 MG [Concomitant]
     Indication: Product used for unknown indication
     Dosage: 1 TABLET UNDER THE TONGUE EVERY 8 HOURS AS NEEDED
     Dates: start: 2023

REACTIONS (1)
  - Knee arthroplasty [Unknown]

NARRATIVE: CASE EVENT DATE: 20230116
